FAERS Safety Report 23880649 (Version 2)
Quarter: 2024Q2

REPORT INFORMATION
  Report Type: Spontaneous
  Country: BR (occurrence: BR)
  Receive Date: 20240521
  Receipt Date: 20240528
  Transmission Date: 20240716
  Serious: Yes (Hospitalization)
  Sender: FDA-Public Use
  Company Number: BR-PFIZER INC-202400172242

PATIENT
  Age: 75 Year
  Sex: Female

DRUGS (2)
  1. RITUXIMAB [Suspect]
     Active Substance: RITUXIMAB
     Indication: Lymphoma
     Dosage: 500 MG/50 ML
     Dates: start: 20231101, end: 20231101
  2. RITUXIMAB [Suspect]
     Active Substance: RITUXIMAB
     Dosage: 585.75 MG
     Dates: start: 20231122, end: 20231122

REACTIONS (4)
  - Feeling hot [Recovered/Resolved]
  - Hyperaemia [Recovered/Resolved]
  - Erythema [Recovered/Resolved]
  - Respiratory disorder [Recovered/Resolved]

NARRATIVE: CASE EVENT DATE: 20231101
